FAERS Safety Report 9461279 (Version 3)
Quarter: 2013Q3

REPORT INFORMATION
  Report Type: Spontaneous
  Country: US (occurrence: US)
  Receive Date: 20130816
  Receipt Date: 20130930
  Transmission Date: 20140515
  Serious: No
  Sender: FDA-Public Use
  Company Number: US-PFIZER INC-2013237229

PATIENT
  Age: 69 Year
  Sex: Male
  Weight: 72.56 kg

DRUGS (2)
  1. SUTENT [Suspect]
     Indication: RENAL CANCER
     Dosage: 50 MG, CYCLIC
     Dates: start: 20121002
  2. SUTENT [Suspect]
     Indication: LARYNGEAL CANCER
     Dosage: 37.5 MG, CYCLIC
     Dates: start: 20121107

REACTIONS (3)
  - Dyspepsia [Unknown]
  - Mental disorder [Unknown]
  - Off label use [Unknown]
